FAERS Safety Report 15616619 (Version 2)
Quarter: 2018Q4

REPORT INFORMATION
  Report Type: Spontaneous
  Country: CA (occurrence: CA)
  Receive Date: 20181114
  Receipt Date: 20181210
  Transmission Date: 20190205
  Serious: Yes (Other)
  Sender: FDA-Public Use
  Company Number: CA-PFIZER INC-2018463168

PATIENT
  Age: 50 Year
  Sex: Female

DRUGS (4)
  1. DOSTINEX [Suspect]
     Active Substance: CABERGOLINE
     Dosage: 0.5 MG, WEEKLY
  2. SOMATULINE [LANREOTIDE] [Concomitant]
     Dosage: 120 MG, (EVERY 28 DAYS)
  3. VITAMIN D [COLECALCIFEROL] [Concomitant]
     Dosage: UNK UNK, WEEKLY
  4. LUPRON [Concomitant]
     Active Substance: LEUPROLIDE ACETATE
     Dosage: EVERY 3 MONTHS

REACTIONS (1)
  - Acromegaly [Not Recovered/Not Resolved]

NARRATIVE: CASE EVENT DATE: 201801
